FAERS Safety Report 16039598 (Version 1)
Quarter: 2019Q2

REPORT INFORMATION
  Report Type: Spontaneous
  Country: US (occurrence: US)
  Receive Date: 20190305
  Receipt Date: 20190305
  Transmission Date: 20190711
  Serious: Yes (Hospitalization)
  Sender: FDA-Public Use
  Company Number: None

PATIENT
  Age: 65 Year
  Sex: Male

DRUGS (11)
  1. OMEGA-3 CAPSULE 1000MG [Concomitant]
     Dates: start: 20180723
  2. EPLERENONE 25MG TABLETS [Concomitant]
     Dates: start: 20180723
  3. AMIODARONE 200MG TABLETS [Concomitant]
     Active Substance: AMIODARONE
     Dates: start: 20180723
  4. VALSARTAN 40MG TABLETS [Concomitant]
     Dates: start: 20180723
  5. BIOTIN FORTE TAB 5 MG [Concomitant]
     Dates: start: 20180723
  6. JANTOVEN 2.5MG TABLETS [Concomitant]
     Dates: start: 20180723
  7. MULTI-VITAMIN [Concomitant]
     Active Substance: .ALPHA.-TOCOPHEROL ACETATE, DL-\ASCORBIC ACID\CYANOCOBALAMIN\FLUORIDE ION\FOLIC ACID\NIACIN\PYRIDOXINE\RIBOFLAVIN\THIAMINE\VITAMIN A\VITAMIN D
     Dates: start: 20180723
  8. CO-Q 10 CAPSULES OMEGA 3 [Concomitant]
     Dates: start: 20180723
  9. CITRACAL TAB MAXIMUM [Concomitant]
     Dates: start: 20180723
  10. SILDENAFIL. [Suspect]
     Active Substance: SILDENAFIL
     Indication: PULMONARY HYPERTENSION
     Route: 048
  11. DIGITEK 0.125MG TABLETS [Concomitant]
     Dates: start: 20180723

REACTIONS (2)
  - Catheterisation cardiac [None]
  - Echocardiogram [None]

NARRATIVE: CASE EVENT DATE: 20190218
